FAERS Safety Report 19510681 (Version 1)
Quarter: 2021Q3

REPORT INFORMATION
  Report Type: Report from Study
  Country: None (occurrence: GR)
  Receive Date: 20210708
  Receipt Date: 20210708
  Transmission Date: 20211014
  Serious: Yes (Hospitalization)
  Sender: FDA-Public Use
  Company Number: GR-ABBVIE-21K-066-3979475-00

PATIENT
  Age: 81 Year
  Sex: Male

DRUGS (16)
  1. DUODOPA [Suspect]
     Active Substance: CARBIDOPA\LEVODOPA
     Indication: PARKINSON^S DISEASE
     Dosage: MORNING DOSE: 13.0ML; CONTINUOUS RATE: 3.3ML/H; EXTRA DOSE: 2.0ML
     Route: 050
     Dates: start: 20190930, end: 20210705
  2. CORTINEFF [Concomitant]
     Active Substance: FLUDROCORTISONE
     Indication: PRODUCT USED FOR UNKNOWN INDICATION
     Route: 048
  3. SALOSPIR [Concomitant]
     Active Substance: ASPIRIN
     Indication: PRODUCT USED FOR UNKNOWN INDICATION
     Dosage: 1X1 (NOON)
     Route: 048
  4. DUODOPA [Suspect]
     Active Substance: CARBIDOPA\LEVODOPA
     Dosage: MORNING DOSE: 13.0ML; CONTINUOUS RATE: 3.5ML/H; EXTRA DOSE: 2.0ML
     Route: 050
     Dates: start: 20210705
  5. EBIXA [Concomitant]
     Active Substance: MEMANTINE HYDROCHLORIDE
     Indication: HALLUCINATION
     Route: 048
  6. ROSUVASTATIN. [Concomitant]
     Active Substance: ROSUVASTATIN
     Indication: HYPERCHOLESTEROLAEMIA
     Dosage: 1X1 (NIGHT)
     Route: 048
  7. NOVASOURCE DIABET [Concomitant]
     Indication: PRODUCT USED FOR UNKNOWN INDICATION
     Dosage: 500 CC/1 / DAY
     Route: 048
     Dates: start: 202009
  8. NEUPRO [Concomitant]
     Active Substance: ROTIGOTINE
     Indication: PARKINSON^S DISEASE
     Dosage: 1X1 (MORNING)
     Route: 062
  9. FRUMIL [Concomitant]
     Active Substance: AMILORIDE HYDROCHLORIDE\FUROSEMIDE
     Indication: CARDIAC FAILURE
     Dosage: UNIT DOSE (20+2.5)MG; FORM STRENGTH (40+5)MG (1X1  (MORNING)
     Route: 048
  10. SEROQUEL XR [Concomitant]
     Active Substance: QUETIAPINE FUMARATE
     Indication: PRODUCT USED FOR UNKNOWN INDICATION
     Dosage: 1X1 (NIGHT)
     Route: 048
  11. CIPRALEX [Concomitant]
     Active Substance: ESCITALOPRAM OXALATE
     Indication: PRODUCT USED FOR UNKNOWN INDICATION
     Dosage: 1X1 (MORNING)
     Route: 048
  12. UROREC [Concomitant]
     Active Substance: SILODOSIN
     Indication: PRODUCT USED FOR UNKNOWN INDICATION
     Dosage: 1X1 (NOON)
     Route: 048
  13. EXELON [Concomitant]
     Active Substance: RIVASTIGMINE TARTRATE
     Indication: DEMENTIA
     Dosage: 1X1 (MORNING)
     Route: 062
  14. NEXIUM [Concomitant]
     Active Substance: ESOMEPRAZOLE MAGNESIUM
     Indication: PRODUCT USED FOR UNKNOWN INDICATION
     Dosage: 1X1 (NIGHT)
     Route: 048
  15. GLUCOPHAGE [Concomitant]
     Active Substance: METFORMIN HYDROCHLORIDE
     Indication: TYPE 2 DIABETES MELLITUS
     Dosage: 1X1 (NOON)
     Route: 048
  16. SEROQUEL [Concomitant]
     Active Substance: QUETIAPINE FUMARATE
     Indication: PRODUCT USED FOR UNKNOWN INDICATION
     Route: 048

REACTIONS (4)
  - Pallor [Unknown]
  - Dysphagia [Recovered/Resolved]
  - Aspiration [Recovered/Resolved]
  - Foreign body in throat [Unknown]

NARRATIVE: CASE EVENT DATE: 20210630
